FAERS Safety Report 5372860-1 (Version None)
Quarter: 2007Q2

REPORT INFORMATION
  Report Type: 
  Country: None (occurrence: None)
  Receive Date: 20070621
  Receipt Date: 20070423
  Transmission Date: 20071010
  Serious: No
  Sender: FDA-Public Use
  Company Number: US-CVT-070098

PATIENT
  Age: 88 Year
  Sex: Female

DRUGS (2)
  1. RANEXA [Suspect]
     Indication: ANGINA PECTORIS
     Dosage: BID,ORAL
     Route: 048
     Dates: start: 20070101
  2. PREDNISONE/00044701/ (PREDNISONE) [Concomitant]

REACTIONS (4)
  - JOINT SWELLING [None]
  - LIP SWELLING [None]
  - MUSCULAR WEAKNESS [None]
  - SWELLING FACE [None]
